FAERS Safety Report 13242043 (Version 1)
Quarter: 2017Q1

REPORT INFORMATION
  Report Type: Spontaneous
  Country: US (occurrence: US)
  Receive Date: 20170216
  Receipt Date: 20170216
  Transmission Date: 20170428
  Serious: No
  Sender: FDA-Public Use
  Company Number: US-RELYPSA-RLY2017000019

PATIENT
  Sex: Female

DRUGS (17)
  1. VELTASSA [Suspect]
     Active Substance: PATIROMER
     Indication: HYPERKALAEMIA
     Dosage: 8.4 G, QD
     Route: 048
     Dates: start: 20160325
  2. SODIUM BICARBONATE. [Concomitant]
     Active Substance: SODIUM BICARBONATE
  3. OSCAL D [Concomitant]
     Active Substance: CALCIUM CARBONATE\CHOLECALCIFEROL
  4. MYCOPHENOLATE MOFETIL. [Concomitant]
     Active Substance: MYCOPHENOLATE MOFETIL
  5. FAMOTIDINE. [Concomitant]
     Active Substance: FAMOTIDINE
  6. NASONEX [Concomitant]
     Active Substance: MOMETASONE FUROATE
  7. SYMBICORT [Concomitant]
     Active Substance: BUDESONIDE\FORMOTEROL FUMARATE DIHYDRATE
  8. D-3 [Concomitant]
     Active Substance: CHOLECALCIFEROL
  9. EPLERENONE. [Concomitant]
     Active Substance: EPLERENONE
  10. SOLIRIS [Concomitant]
     Active Substance: ECULIZUMAB
  11. PROCRIT [Concomitant]
     Active Substance: ERYTHROPOIETIN
  12. SINGULAIR [Concomitant]
     Active Substance: MONTELUKAST SODIUM
  13. ASPIRIN                            /00002701/ [Concomitant]
     Active Substance: ASPIRIN
  14. ERGOCALCIFEROL. [Concomitant]
     Active Substance: ERGOCALCIFEROL
  15. CRESTOR [Concomitant]
     Active Substance: ROSUVASTATIN CALCIUM
  16. LOSARTAN POTASSIUM. [Concomitant]
     Active Substance: LOSARTAN POTASSIUM
  17. HYDROCHLOROTHIAZIDE. [Concomitant]
     Active Substance: HYDROCHLOROTHIAZIDE

REACTIONS (1)
  - Influenza [Not Recovered/Not Resolved]

NARRATIVE: CASE EVENT DATE: 2016
